FAERS Safety Report 9598848 (Version 1)
Quarter: 2013Q4

REPORT INFORMATION
  Report Type: Spontaneous
  Country: US (occurrence: US)
  Receive Date: 20131004
  Receipt Date: 20131004
  Transmission Date: 20140711
  Serious: No
  Sender: FDA-Public Use
  Company Number: US-AMGEN-USASP2013026130

PATIENT
  Age: 43 Year
  Sex: Male

DRUGS (1)
  1. ENBREL [Suspect]
     Indication: PSORIATIC ARTHROPATHY
     Dosage: 50 MG,EVERY 3-4 WEEKS
     Dates: start: 20111015

REACTIONS (4)
  - Pain in extremity [Recovered/Resolved]
  - Skin papilloma [Recovered/Resolved]
  - Weight increased [Recovered/Resolved]
  - Oral herpes [Not Recovered/Not Resolved]
